FAERS Safety Report 4661525-7 (Version None)
Quarter: 2005Q2

REPORT INFORMATION
  Report Type: 
  Country: None (occurrence: None)
  Receive Date: 20050502
  Receipt Date: 20050127
  Transmission Date: 20051028
  Serious: No
  Sender: FDA-Public Use
  Company Number: 200510124US

PATIENT
  Age: 51 Year
  Sex: Male

DRUGS (8)
  1. KETEK [Suspect]
     Indication: PNEUMONIA
     Dosage: 800 MG QD
     Dates: start: 20041231, end: 20050101
  2. KETEK [Suspect]
     Indication: PNEUMONIA
     Dosage: 800 MG QD
     Dates: start: 20050103
  3. PROMETHAZINE HCL [Concomitant]
  4. GUAIFENESIN [Concomitant]
  5. NALBUPHINE [Concomitant]
  6. CEFTRIAXONE SODIUM (ROCEPHIN) [Concomitant]
  7. PARACETAMOL, HYDROCODONE BITARTRATE (VICODIN) [Concomitant]
  8. LIDOCAINE (LIDODERM) [Concomitant]

REACTIONS (4)
  - DIPLOPIA [None]
  - EYELID PTOSIS [None]
  - HEADACHE [None]
  - NECK INJURY [None]
